FAERS Safety Report 24653726 (Version 1)
Quarter: 2024Q4

REPORT INFORMATION
  Report Type: Spontaneous
  Country: US (occurrence: US)
  Receive Date: 20241122
  Receipt Date: 20241122
  Transmission Date: 20250115
  Serious: No
  Sender: NOVO NORDISK
  Company Number: US-NOVOPROD-1172659

PATIENT
  Sex: Female

DRUGS (1)
  1. TRESIBA [Suspect]
     Active Substance: INSULIN DEGLUDEC
     Indication: Type 2 diabetes mellitus
     Dosage: UNK
     Route: 058
     Dates: start: 20230814

REACTIONS (6)
  - Asthenia [Unknown]
  - Pain [Unknown]
  - Nausea [Unknown]
  - Food craving [Unknown]
  - Decreased appetite [Not Recovered/Not Resolved]
  - Product storage error [Unknown]
